FAERS Safety Report 12428855 (Version 1)
Quarter: 2016Q2

REPORT INFORMATION
  Report Type: Spontaneous
  Country: US (occurrence: US)
  Receive Date: 20160602
  Receipt Date: 20160602
  Transmission Date: 20160815
  Serious: Yes (Hospitalization)
  Sender: FDA-Public Use
  Company Number: US-BAYER-2016-105524

PATIENT
  Sex: Female

DRUGS (1)
  1. COPPERTONE SPF 8 [Suspect]
     Active Substance: OCTINOXATE\OCTOCRYLENE

REACTIONS (1)
  - Sunburn [None]
